FAERS Safety Report 8531185-3 (Version None)
Quarter: 2012Q3

REPORT INFORMATION
  Report Type: 
  Country: None (occurrence: None)
  Receive Date: 20120723
  Receipt Date: 20120716
  Transmission Date: 20120928
  Serious: Yes (Other)
  Sender: FDA-Public Use
  Company Number: VE-ELI_LILLY_AND_COMPANY-VE201207005087

PATIENT
  Age: 50 Year
  Sex: Female

DRUGS (3)
  1. HUMALOG MIX 75/25 [Suspect]
     Dosage: 33 U, EACH EVENING
     Dates: start: 20120517
  2. HUMALOG [Suspect]
     Dosage: UNK, EACH MORNING
     Dates: start: 20120517
  3. HUMALOG MIX 75/25 [Suspect]
     Dosage: 48 U, EACH MORNING
     Dates: start: 20120517

REACTIONS (3)
  - URINARY TRACT INFECTION [None]
  - VAGINAL ABSCESS [None]
  - HYPERGLYCAEMIA [None]
